FAERS Safety Report 6161986-0 (Version None)
Quarter: 2009Q2

REPORT INFORMATION
  Report Type: 
  Country: None (occurrence: None)
  Receive Date: 20090421
  Receipt Date: 20080318
  Transmission Date: 20091009
  Serious: No
  Sender: FDA-Public Use
  Company Number: US-SOLVAY-00208001181

PATIENT
  Age: 19221 Day
  Sex: Female
  Weight: 66 kg

DRUGS (3)
  1. VIVELLE-DOT [Concomitant]
     Indication: HORMONE REPLACEMENT THERAPY
     Dosage: DAILY DOSE: 0.375 MG PATCH REPLACED TWICE PER WEEK
     Route: 058
     Dates: start: 20071001
  2. ANDROGEL [Suspect]
     Indication: ACCIDENTAL EXPOSURE
     Dosage: DAILY DOSE: 6.25 GRAM(S) VIA PUMP
     Route: 062
     Dates: start: 20060101
  3. PROMETRIUM [Suspect]
     Indication: HORMONE REPLACEMENT THERAPY
     Dosage: DAILY DOSE: 200 MILLIGRAM(S) FOR 10 DAYS EVERY 3 MONTHS. LAST SEQUENCE WAS 01 MAR TO 10 MAR 2008
     Route: 048
     Dates: start: 20080101

REACTIONS (1)
  - MENSTRUAL DISORDER [None]
